FAERS Safety Report 25707958 (Version 2)
Quarter: 2025Q3

REPORT INFORMATION
  Report Type: Spontaneous
  Country: US (occurrence: US)
  Receive Date: 20250820
  Receipt Date: 20250912
  Transmission Date: 20251020
  Serious: Yes (Hospitalization)
  Sender: BIOMARIN
  Company Number: US-BIOMARINAP-US-2025-168180

PATIENT
  Sex: Male

DRUGS (1)
  1. VIMIZIM [Suspect]
     Active Substance: ELOSULFASE ALFA
     Indication: Mucopolysaccharidosis IV
     Dosage: 70 MILLIGRAM, QW
     Dates: start: 201605

REACTIONS (3)
  - Device related sepsis [Recovered/Resolved]
  - Device related infection [Recovered/Resolved]
  - Infection [Recovered/Resolved]

NARRATIVE: CASE EVENT DATE: 20250801
